FAERS Safety Report 5331176-X (Version None)
Quarter: 2007Q2

REPORT INFORMATION
  Report Type: 
  Country: None (occurrence: None)
  Receive Date: 20070227
  Receipt Date: 20060228
  Transmission Date: 20071010
  Serious: Yes (Other)
  Sender: FDA-Public Use
  Company Number: 438676

PATIENT
  Sex: Female

DRUGS (1)
  1. ACCUTANE [Suspect]
     Indication: KERATOSIS FOLLICULAR
     Dosage: ORAL
     Route: 048
     Dates: start: 20060215

REACTIONS (1)
  - DEPRESSION [None]
